FAERS Safety Report 7251461 (Version 5)
Quarter: 2012Q4

REPORT INFORMATION
  Report Type: 
  Country: US (occurrence: US)
  Receive Date: 20100121
  Receipt Date: 20120928
  Transmission Date: 20130627
  Serious: Yes (Hospitalization, Disabling)
  Sender: FDA-Public Use
  Company Number: US-BAYER-201011770NA

PATIENT
  Age: 48 Year
  Sex: Female
  Weight: 56.69 kg

DRUGS (3)
  1. YAZ [Suspect]
     Dosage: 1 DF (Daily Dose), QD, oral
     Route: 048
     Dates: start: 200706, end: 20080918
  2. YASMIN [Suspect]
     Dosage: UNK
     Dates: start: 200706
  3. IBUPROFEN [IBUPROFEN SODIUM] [Concomitant]
     Dosage: UNK UNK, PRN

REACTIONS (1)
  - Cerebrovascular accident [Unknown]
